FAERS Safety Report 21668404 (Version 1)
Quarter: 2022Q4

REPORT INFORMATION
  Report Type: Report from Study
  Country: CA (occurrence: CA)
  Receive Date: 20221201
  Receipt Date: 20221201
  Transmission Date: 20230112
  Serious: Yes (Other)
  Sender: FDA-Public Use
  Company Number: CA-JNJFOC-20221162897

PATIENT
  Age: 48 Year
  Sex: Female

DRUGS (1)
  1. REMICADE [Suspect]
     Active Substance: INFLIXIMAB
     Indication: Crohn^s disease
     Route: 041

REACTIONS (7)
  - Syncope [Unknown]
  - COVID-19 [Recovering/Resolving]
  - Fall [Unknown]
  - Skin laceration [Unknown]
  - Hypotension [Unknown]
  - Haemoglobin decreased [Unknown]
  - Back pain [Unknown]

NARRATIVE: CASE EVENT DATE: 20221101
